APPROVED DRUG PRODUCT: SODIUM PHENYLACETATE AND SODIUM BENZOATE
Active Ingredient: SODIUM BENZOATE; SODIUM PHENYLACETATE
Strength: 10%;10% (2GM/20ML;2GM/20ML)
Dosage Form/Route: SOLUTION;INTRAVENOUS
Application: N215025 | Product #001 | TE Code: AP
Applicant: MAIA PHARMACEUTICALS INC
Approved: Jun 10, 2021 | RLD: Yes | RS: Yes | Type: RX